FAERS Safety Report 11075125 (Version 1)
Quarter: 2015Q2

REPORT INFORMATION
  Report Type: Spontaneous
  Country: PT (occurrence: PT)
  Receive Date: 20150429
  Receipt Date: 20150429
  Transmission Date: 20150821
  Serious: Yes (Other)
  Sender: FDA-Public Use
  Company Number: PT-JNJFOC-20150201961

PATIENT
  Age: 20 Year
  Sex: Female

DRUGS (1)
  1. STELARA [Suspect]
     Active Substance: USTEKINUMAB
     Indication: CROHN^S DISEASE
     Dosage: 0,1 AND 2 AND THEN EVERY 8 WEEKS
     Route: 058
     Dates: start: 20150122

REACTIONS (7)
  - Drug ineffective [Unknown]
  - Myalgia [Unknown]
  - Condition aggravated [Unknown]
  - Dizziness [Unknown]
  - Fatigue [Unknown]
  - Surgery [Recovering/Resolving]
  - Product use issue [Unknown]

NARRATIVE: CASE EVENT DATE: 20150122
